FAERS Safety Report 11047023 (Version 1)
Quarter: 2015Q2

REPORT INFORMATION
  Report Type: Report from Study
  Country: IT (occurrence: IT)
  Receive Date: 20150420
  Receipt Date: 20150420
  Transmission Date: 20150821
  Serious: Yes (Death, Hospitalization)
  Sender: FDA-Public Use
  Company Number: IT-CELGENE-AZAIT200800007

PATIENT
  Age: 70 Year
  Sex: Male
  Weight: 80 kg

DRUGS (6)
  1. DEPAKIN [Suspect]
     Active Substance: VALPROATE SODIUM
     Indication: MYELODYSPLASTIC SYNDROME
     Route: 048
     Dates: start: 20070530, end: 20071125
  2. DELTACORTENE [Concomitant]
     Active Substance: PREDNISONE
     Indication: BRONCHOPNEUMONIA
  3. ATRA [Suspect]
     Active Substance: TRETINOIN
     Indication: MYELODYSPLASTIC SYNDROME
     Route: 065
     Dates: start: 20071030, end: 20071213
  4. LOSAPREX [Concomitant]
     Active Substance: LOSARTAN POTASSIUM
     Indication: HYPERTENSION
  5. BENUR [Concomitant]
     Active Substance: DOXAZOSIN MESYLATE
  6. VIDAZA [Suspect]
     Active Substance: AZACITIDINE
     Indication: MYELODYSPLASTIC SYNDROME
     Route: 058
     Dates: start: 20071207, end: 20071213

REACTIONS (6)
  - Cardiotoxicity [Fatal]
  - Cardiac arrest [Fatal]
  - Anaemic hypoxia [Fatal]
  - Refractory cytopenia with unilineage dysplasia [Fatal]
  - Respiratory distress [Fatal]
  - Pyrexia [Fatal]

NARRATIVE: CASE EVENT DATE: 20071214
